FAERS Safety Report 6545656-2 (Version None)
Quarter: 2010Q1

REPORT INFORMATION
  Report Type: 
  Country: None (occurrence: None)
  Receive Date: 20100121
  Receipt Date: 20100111
  Transmission Date: 20100710
  Serious: Yes (Other)
  Sender: FDA-Public Use
  Company Number: PHEH2008US03155

PATIENT
  Sex: Female

DRUGS (18)
  1. ZOMETA [Suspect]
     Dosage: ONCE MONTHLY
     Dates: start: 20040201, end: 20061101
  2. FASLODEX [Concomitant]
  3. DECADRON                                /CAN/ [Concomitant]
  4. NEUPOGEN [Concomitant]
  5. KYTRIL [Concomitant]
  6. NEULASTA [Concomitant]
  7. PRILOSEC [Concomitant]
  8. DETROL [Concomitant]
  9. LEXAPRO [Concomitant]
  10. ENALAPRIL MALEATE [Concomitant]
  11. OXYCODONE [Concomitant]
  12. SKELAXIN [Concomitant]
  13. ABRAXANE [Concomitant]
  14. CARBOPLATIN [Concomitant]
  15. ALEVE [Concomitant]
  16. VITAMINS [Concomitant]
  17. AROMASIN [Concomitant]
  18. FOSAMAX [Concomitant]

REACTIONS (16)
  - ANAEMIA [None]
  - ANHEDONIA [None]
  - CHOLELITHIASIS [None]
  - DEPRESSED MOOD [None]
  - EMOTIONAL DISTRESS [None]
  - HEPATIC CYST [None]
  - INFECTION [None]
  - INJURY [None]
  - LUMBAR VERTEBRAL FRACTURE [None]
  - METASTASES TO BONE [None]
  - OSTEONECROSIS [None]
  - OSTEOPENIA [None]
  - PAIN [None]
  - SCAR [None]
  - TOOTH LOSS [None]
  - VERTEBROPLASTY [None]
